FAERS Safety Report 14847195 (Version 1)
Quarter: 2018Q2

REPORT INFORMATION
  Report Type: Other
  Country: CA (occurrence: CA)
  Receive Date: 20180504
  Receipt Date: 20180504
  Transmission Date: 20180711
  Serious: Yes (Life-Threatening, Hospitalization, Other)
  Sender: FDA-Public Use
  Company Number: CA-APOTEX-2018AP011332

PATIENT
  Age: 58 Year
  Sex: Female

DRUGS (5)
  1. GEMCITABINE [Suspect]
     Active Substance: GEMCITABINE\GEMCITABINE HYDROCHLORIDE
     Indication: CHOLANGIOCARCINOMA
     Dosage: 1000 MG/M2, CYCLICAL,UNK
     Route: 042
  2. CISPLATIN. [Suspect]
     Active Substance: CISPLATIN
     Indication: CHOLANGIOCARCINOMA
     Dosage: 34 MG, CYCLICAL
     Route: 042
  3. CISPLATIN. [Suspect]
     Active Substance: CISPLATIN
     Dosage: 20 MG/M2, CYCLICAL,UNK
     Route: 042
  4. GEMCITABINE [Suspect]
     Active Substance: GEMCITABINE\GEMCITABINE HYDROCHLORIDE
     Dosage: 1700 CYCLICAL, UNK
     Route: 042
  5. AMLODIPINE [Concomitant]
     Active Substance: AMLODIPINE BESYLATE
     Indication: BLOOD PRESSURE MANAGEMENT
     Dosage: 10 MG, UNK
     Route: 048

REACTIONS (9)
  - Agitation [Unknown]
  - Hypokalaemia [Unknown]
  - Blood magnesium decreased [Unknown]
  - Visual impairment [Unknown]
  - Confusional state [Unknown]
  - Balance disorder [Unknown]
  - Posterior reversible encephalopathy syndrome [Recovered/Resolved]
  - Somnolence [Unknown]
  - Coma scale abnormal [Unknown]
